FAERS Safety Report 5774392-5 (Version None)
Quarter: 2008Q2

REPORT INFORMATION
  Report Type: 
  Country: None (occurrence: None)
  Receive Date: 20080616
  Receipt Date: 20080606
  Transmission Date: 20081010
  Serious: Yes (Death, Hospitalization)
  Sender: FDA-Public Use
  Company Number: US-SANOFI-SYNTHELABO-A03200802020

PATIENT
  Sex: Female
  Weight: 89.4 kg

DRUGS (12)
  1. PLAVIX [Suspect]
     Indication: CORONARY ARTERY DISEASE
     Route: 048
     Dates: start: 20080421, end: 20080424
  2. PLAVIX [Suspect]
     Indication: CORONARY ARTERY THROMBOSIS
     Route: 048
     Dates: start: 20080421, end: 20080424
  3. ASPIRIN [Suspect]
     Indication: ATRIAL FIBRILLATION
     Dosage: UNK
     Route: 048
  4. ASPIRIN [Suspect]
     Indication: THROMBOSIS
     Dosage: UNK
     Route: 048
  5. SYNTHROID [Concomitant]
     Indication: DRUG USE FOR UNKNOWN INDICATION
     Dosage: UNK
     Route: 048
  6. SONATA [Concomitant]
     Indication: DRUG USE FOR UNKNOWN INDICATION
     Route: 048
  7. POTASSIUM CHLORIDE [Concomitant]
     Indication: DRUG USE FOR UNKNOWN INDICATION
     Route: 048
  8. LIPITOR [Concomitant]
     Indication: DRUG USE FOR UNKNOWN INDICATION
     Route: 048
  9. ENALAPRIL MALEATE [Concomitant]
     Indication: DRUG USE FOR UNKNOWN INDICATION
     Dosage: 10 MG A.M. AND 5 MG H.S.
     Route: 048
  10. BUMEX [Concomitant]
     Indication: DRUG USE FOR UNKNOWN INDICATION
     Route: 048
  11. COUMADIN [Suspect]
     Indication: ATRIAL FIBRILLATION
     Dosage: 1 MG TWO DAYS A WEEK AND 2 MG ON OTHER DAYS
     Route: 048
     Dates: end: 20080424
  12. COUMADIN [Suspect]
     Indication: THROMBOSIS
     Dosage: 1 MG TWO DAYS A WEEK AND 2 MG ON OTHER DAYS
     Route: 048
     Dates: end: 20080424

REACTIONS (8)
  - ANAEMIA [None]
  - BRADYCARDIA [None]
  - HAEMATOMA [None]
  - HYPERKALAEMIA [None]
  - HYPONATRAEMIA [None]
  - INJECTION SITE INFECTION [None]
  - RESPIRATORY FAILURE [None]
  - STAPHYLOCOCCAL SEPSIS [None]
